FAERS Safety Report 7504508-1 (Version None)
Quarter: 2011Q2

REPORT INFORMATION
  Report Type: 
  Country: None (occurrence: None)
  Receive Date: 20110525
  Receipt Date: 20110517
  Transmission Date: 20111010
  Serious: Yes (Hospitalization)
  Sender: FDA-Public Use
  Company Number: US-ABBOTT-11P-163-0721114-00

PATIENT
  Sex: Female

DRUGS (7)
  1. LUPRON DEPOT [Suspect]
     Indication: UTERINE LEIOMYOMA
  2. PROMETRIUM [Suspect]
     Indication: HAEMORRHAGE
  3. LUPRON DEPOT [Suspect]
  4. ASACOL [Concomitant]
     Indication: PRODUCT USED FOR UNKNOWN INDICATION
     Dosage: 2400 MG DAILY
     Dates: start: 20010101
  5. PROMETRIUM [Suspect]
     Indication: MENSTRUAL DISORDER
     Dates: start: 20101107, end: 20101122
  6. PROMETRIUM [Suspect]
     Indication: MENOPAUSE
     Dosage: 400MG DAILY, 200MG BID
     Dates: start: 20100201, end: 20100301
  7. VITAMIN D [Concomitant]
     Indication: PRODUCT USED FOR UNKNOWN INDICATION

REACTIONS (5)
  - HAEMOGLOBIN DECREASED [None]
  - VAGINAL HAEMORRHAGE [None]
  - DRUG INEFFECTIVE [None]
  - HAEMATOCRIT DECREASED [None]
  - LOSS OF CONSCIOUSNESS [None]
